FAERS Safety Report 5026102-7 (Version None)
Quarter: 2006Q2

REPORT INFORMATION
  Report Type: 
  Country: None (occurrence: None)
  Receive Date: 20060612
  Receipt Date: 20060612
  Transmission Date: 20061013
  Serious: Yes (Other)
  Sender: FDA-Public Use
  Company Number: None

PATIENT
  Age: 63 Year
  Sex: Female
  Weight: 106.5953 kg

DRUGS (1)
  1. MIRAPEX [Suspect]
     Indication: RESTLESS LEGS SYNDROME
     Dosage: SEE IMAGE
     Route: 048
     Dates: start: 20030601, end: 20060608

REACTIONS (3)
  - ABNORMAL BEHAVIOUR [None]
  - GAMBLING [None]
  - OBSESSIVE-COMPULSIVE DISORDER [None]
